FAERS Safety Report 20485066 (Version 1)
Quarter: 2022Q1

REPORT INFORMATION
  Report Type: Spontaneous
  Country: US (occurrence: US)
  Receive Date: 20220217
  Receipt Date: 20220217
  Transmission Date: 20220423
  Serious: Yes (Hospitalization)
  Sender: FDA-Public Use
  Company Number: US-ALKERMES INC.-ALK-2022-000803

PATIENT
  Sex: Male

DRUGS (1)
  1. ARISTADA [Suspect]
     Active Substance: ARIPIPRAZOLE LAUROXIL
     Indication: Mental disorder
     Dosage: 1064 MILLIGRAM, Q8WK
     Route: 030

REACTIONS (4)
  - Depression [Unknown]
  - Suicidal ideation [Recovered/Resolved]
  - Product dose omission issue [Not Recovered/Not Resolved]
  - Patient elopement [Recovered/Resolved]

NARRATIVE: CASE EVENT DATE: 20220101
